FAERS Safety Report 8611753 (Version 6)
Quarter: 2014Q2

REPORT INFORMATION
  Report Type: Spontaneous
  Country: JP (occurrence: JP)
  Receive Date: 20120613
  Receipt Date: 20140410
  Transmission Date: 20141212
  Serious: Yes (Other)
  Sender: FDA-Public Use
  Company Number: JP-B.I. PHARMACEUTICALS,INC./RIDGEFIELD-2012-BP-13175NB

PATIENT
  Age: 72 Year
  Sex: Male

DRUGS (2)
  1. PRAZAXA [Suspect]
     Indication: ATRIAL FIBRILLATION
     Dosage: 220 MG
     Route: 048
     Dates: start: 201108
  2. FUROSEMIDE [Concomitant]
     Indication: CARDIAC FAILURE
     Dosage: CONTINUOUS DRIP INFUSION
     Route: 065

REACTIONS (1)
  - Embolic stroke [Unknown]
